FAERS Safety Report 19785112 (Version 1)
Quarter: 2021Q3

REPORT INFORMATION
  Report Type: Spontaneous
  Country: US (occurrence: US)
  Receive Date: 20210903
  Receipt Date: 20210903
  Transmission Date: 20211014
  Serious: Yes (Death, Other)
  Sender: FDA-Public Use
  Company Number: US-GLAXOSMITHKLINE-US2021GSK185843

PATIENT
  Sex: Male

DRUGS (7)
  1. ZANTAC [Suspect]
     Active Substance: RANITIDINE HYDROCHLORIDE
     Indication: GASTRECTOMY
     Dosage: 25 MG, QD
     Route: 065
     Dates: start: 200601, end: 201909
  2. RANITIDINE CAPSULE [Suspect]
     Active Substance: RANITIDINE
     Indication: GASTRECTOMY
     Dosage: 25 MG, QD
     Route: 065
     Dates: start: 200601, end: 201909
  3. RANITIDINE. [Suspect]
     Active Substance: RANITIDINE
     Indication: GASTRECTOMY
     Dosage: 25 MG, QD
     Route: 065
     Dates: start: 200601, end: 201909
  4. RANITIDINE. [Suspect]
     Active Substance: RANITIDINE
     Indication: GASTRECTOMY
     Dosage: 25 MG, QD
     Route: 065
     Dates: start: 200601, end: 201909
  5. RANITIDINE. [Suspect]
     Active Substance: RANITIDINE
     Indication: GASTRECTOMY
     Dosage: 25 MG, QD
     Route: 065
     Dates: start: 200601, end: 201909
  6. ZANTAC [Suspect]
     Active Substance: RANITIDINE HYDROCHLORIDE
     Indication: GASTRECTOMY
     Dosage: 25 MG, QD
     Route: 065
     Dates: start: 200601, end: 201909
  7. ZANTAC [Suspect]
     Active Substance: RANITIDINE HYDROCHLORIDE
     Indication: GASTRECTOMY
     Dosage: 25 MG, QD
     Route: 065
     Dates: start: 200601, end: 201909

REACTIONS (1)
  - Hepatic cancer [Fatal]
